FAERS Safety Report 9857817 (Version 1)
Quarter: 2014Q1

REPORT INFORMATION
  Report Type: Spontaneous
  Country: AR (occurrence: AR)
  Receive Date: 20140131
  Receipt Date: 20140131
  Transmission Date: 20141002
  Serious: Yes (Life-Threatening, Hospitalization)
  Sender: FDA-Public Use
  Company Number: AR-BRISTOL-MYERS SQUIBB COMPANY-20089249

PATIENT
  Sex: Male

DRUGS (1)
  1. BELATACEPT [Suspect]

REACTIONS (1)
  - Haemorrhage [Recovering/Resolving]
